FAERS Safety Report 6610295-1 (Version None)
Quarter: 2010Q1

REPORT INFORMATION
  Report Type: 
  Country: None (occurrence: None)
  Receive Date: 20100302
  Receipt Date: 20090610
  Transmission Date: 20100710
  Serious: No
  Sender: FDA-Public Use
  Company Number: US-TYCO HEALTHCARE/MALLINCKRODT-T200901200

PATIENT
  Sex: Male

DRUGS (9)
  1. TECHNESCAN [Suspect]
     Indication: BONE SCAN
     Dosage: UNK
     Route: 042
     Dates: start: 20090601, end: 20090601
  2. ULTRA-TECHNEKOW [Concomitant]
     Indication: BONE SCAN
     Dosage: UNK
     Dates: start: 20090601, end: 20090601
  3. DIGOXIN [Concomitant]
     Dosage: UNK
  4. AMNIPRIL [Concomitant]
     Dosage: UNK
  5. FLOMAX [Concomitant]
     Dosage: UNK
  6. RED YEAST RICE [Concomitant]
     Dosage: UNK
  7. COQ10 [Concomitant]
     Dosage: UNK
  8. HAWTHORN [Concomitant]
     Dosage: UNK
  9. CARVEDOL [Concomitant]

REACTIONS (1)
  - DRUG INEFFECTIVE [None]
